FAERS Safety Report 10210182 (Version 1)
Quarter: 2014Q2

REPORT INFORMATION
  Report Type: Spontaneous
  Country: GB (occurrence: None)
  Receive Date: 20140528
  Receipt Date: 20140528
  Transmission Date: 20141212
  Serious: Yes (Life-Threatening, Other)
  Sender: FDA-Public Use
  Company Number: CL-567-2014

PATIENT
  Age: 43 Year
  Sex: Female
  Weight: 61 kg

DRUGS (19)
  1. ONDANSETRON [Suspect]
     Dates: start: 20140502
  2. AVEENO [Concomitant]
  3. BETAMETHASONE VALERATE [Concomitant]
  4. CYCLIZINE [Concomitant]
  5. DIAZEPAM [Concomitant]
  6. FENTANYL [Concomitant]
  7. GLYCERYL TRINITRATE [Concomitant]
  8. IBUPROFEN [Concomitant]
  9. LEVOTHYROXINE [Concomitant]
  10. NADOLOL [Concomitant]
  11. OILATUM (PARAFFIN, LIQUID) [Concomitant]
  12. PARACETAMOL [Concomitant]
  13. SENNA [Concomitant]
  14. SENOKOT [Concomitant]
  15. SUNVIT-D3 [Concomitant]
  16. TRAMADOL [Concomitant]
  17. TRIMETHOPRIM [Concomitant]
  18. VANIQA [Concomitant]
  19. ZOPICLONE [Concomitant]

REACTIONS (1)
  - Stevens-Johnson syndrome [None]
